FAERS Safety Report 7505210-2 (Version None)
Quarter: 2011Q2

REPORT INFORMATION
  Report Type: 
  Country: None (occurrence: None)
  Receive Date: 20110517
  Receipt Date: 20110512
  Transmission Date: 20111010
  Serious: Yes (Hospitalization, Other)
  Sender: FDA-Public Use
  Company Number: 2010SP028268

PATIENT
  Age: 21 Year
  Sex: Female
  Weight: 68.0396 kg

DRUGS (2)
  1. NUVARING [Suspect]
     Indication: CONTRACEPTION
     Dates: start: 20060101, end: 20080601
  2. TYLENOL-500 [Concomitant]

REACTIONS (11)
  - TRANSVERSE SINUS THROMBOSIS [None]
  - THROMBOPHLEBITIS [None]
  - INSOMNIA [None]
  - INTRACRANIAL VENOUS SINUS THROMBOSIS [None]
  - ANHEDONIA [None]
  - OVARIAN CYST [None]
  - DISTURBANCE IN ATTENTION [None]
  - HEADACHE [None]
  - SUTURE INSERTION [None]
  - HAND FRACTURE [None]
  - ECHINOCOCCIASIS [None]
